FAERS Safety Report 20855700 (Version 1)
Quarter: 2022Q2

REPORT INFORMATION
  Report Type: Spontaneous
  Country: DE (occurrence: DE)
  Receive Date: 20220520
  Receipt Date: 20220520
  Transmission Date: 20220720
  Serious: Yes (Other)
  Sender: FDA-Public Use
  Company Number: None

PATIENT

DRUGS (1)
  1. CYTOTEC [Suspect]
     Active Substance: MISOPROSTOL
     Indication: Labour induction
     Dosage: 50 MG, EVERY 4 HOURS
     Route: 064
     Dates: start: 20180807, end: 20180808

REACTIONS (2)
  - Maternal exposure during pregnancy [Unknown]
  - Foetal arrhythmia [Unknown]

NARRATIVE: CASE EVENT DATE: 20180808
